FAERS Safety Report 11128815 (Version 2)
Quarter: 2015Q2

REPORT INFORMATION
  Report Type: Spontaneous
  Country: CA (occurrence: CA)
  Receive Date: 20150521
  Receipt Date: 20150622
  Transmission Date: 20150821
  Serious: Yes (Other)
  Sender: FDA-Public Use
  Company Number: CA-GLAXOSMITHKLINE-CA2015GSK069251

PATIENT

DRUGS (2)
  1. BUPROPION [Suspect]
     Active Substance: BUPROPION
     Indication: AFFECTIVE DISORDER
  2. BUPROPION [Suspect]
     Active Substance: BUPROPION
     Indication: SUBSTANCE ABUSE

REACTIONS (6)
  - Soft tissue injury [Unknown]
  - Drug abuse [Unknown]
  - Necrosis [Unknown]
  - Cellulitis [Unknown]
  - Compartment syndrome [Unknown]
  - Vascular injury [Unknown]
